FAERS Safety Report 11432538 (Version 2)
Quarter: 2015Q4

REPORT INFORMATION
  Report Type: Spontaneous
  Country: IT (occurrence: IT)
  Receive Date: 20150828
  Receipt Date: 20151012
  Transmission Date: 20160304
  Serious: Yes (Other)
  Sender: FDA-Public Use
  Company Number: IT-ROXANE LABORATORIES, INC.-2015-RO-01419RO

PATIENT
  Age: 56 Year
  Sex: Male

DRUGS (1)
  1. ROPINIROLE. [Suspect]
     Active Substance: ROPINIROLE
     Indication: PARKINSON^S DISEASE
     Dosage: 8 MG
     Route: 065

REACTIONS (3)
  - Drug withdrawal syndrome [Unknown]
  - Dropped head syndrome [Recovered/Resolved]
  - Necrotising myositis [Recovered/Resolved]
